FAERS Safety Report 13240520 (Version 1)
Quarter: 2017Q1

REPORT INFORMATION
  Report Type: Spontaneous
  Country: US (occurrence: US)
  Receive Date: 20170216
  Receipt Date: 20170216
  Transmission Date: 20170428
  Serious: No
  Sender: FDA-Public Use
  Company Number: US-RELYPSA-RLY2016003999

PATIENT
  Age: 72 Year
  Sex: Male

DRUGS (22)
  1. ALLOPURINOL. [Concomitant]
     Active Substance: ALLOPURINOL
  2. FLOMAX [Concomitant]
     Active Substance: TAMSULOSIN HYDROCHLORIDE
  3. METFORMIN HCL [Concomitant]
     Active Substance: METFORMIN HYDROCHLORIDE
  4. METOPROLOL SUCCINATE. [Concomitant]
     Active Substance: METOPROLOL SUCCINATE
  5. JANUVIA [Concomitant]
     Active Substance: SITAGLIPTIN PHOSPHATE
  6. AMLODIPINE BESYLATE. [Concomitant]
     Active Substance: AMLODIPINE BESYLATE
  7. IPRATROPIUM/ALBUTEROL [Concomitant]
     Active Substance: ALBUTEROL\IPRATROPIUM
  8. ATORVASTATIN CALCIUM. [Concomitant]
     Active Substance: ATORVASTATIN CALCIUM
  9. MULTI VITAMIN [Concomitant]
     Active Substance: VITAMINS
  10. VELTASSA [Suspect]
     Active Substance: PATIROMER
     Indication: HYPERKALAEMIA
     Dosage: 16.8 G, QD
     Route: 048
     Dates: start: 20161020
  11. DIOVAN [Concomitant]
     Active Substance: VALSARTAN
  12. ASPIRIN. [Concomitant]
     Active Substance: ASPIRIN
  13. METOLAZONE. [Concomitant]
     Active Substance: METOLAZONE
  14. VALSARTAN. [Concomitant]
     Active Substance: VALSARTAN
  15. VITAMIN B12 [Concomitant]
     Active Substance: CYANOCOBALAMIN
  16. AVODART [Concomitant]
     Active Substance: DUTASTERIDE
  17. MONTELUKAST SODIUM. [Concomitant]
     Active Substance: MONTELUKAST SODIUM
  18. TAMSULOSIN HCL [Concomitant]
     Active Substance: TAMSULOSIN
  19. PRESERVISION AREDS [Concomitant]
     Active Substance: MINERALS\VITAMINS
  20. ADVAIR HFA [Concomitant]
     Active Substance: FLUTICASONE PROPIONATE\SALMETEROL XINAFOATE
  21. FUROSEMIDE. [Concomitant]
     Active Substance: FUROSEMIDE
  22. ALLERGY                            /00000402/ [Concomitant]

REACTIONS (2)
  - Pruritus [Not Recovered/Not Resolved]
  - Diarrhoea [Recovered/Resolved]

NARRATIVE: CASE EVENT DATE: 20161120
